FAERS Safety Report 5054224-3 (Version None)
Quarter: 2006Q3

REPORT INFORMATION
  Report Type: 
  Country: None (occurrence: None)
  Receive Date: 20060718
  Receipt Date: 20060619
  Transmission Date: 20061208
  Serious: Yes (Other)
  Sender: FDA-Public Use
  Company Number: 2006UW13271

PATIENT
  Age: 64 Year
  Sex: Female
  Weight: 94.4 kg

DRUGS (4)
  1. ROSUVASTATIN [Suspect]
     Indication: DIABETES MELLITUS NON-INSULIN-DEPENDENT
     Route: 048
     Dates: start: 20060331, end: 20060425
  2. ROSUVASTATIN [Suspect]
     Route: 048
     Dates: start: 20060601
  3. GLIBENCLAMIDE [Concomitant]
     Indication: DIABETES MELLITUS NON-INSULIN-DEPENDENT
     Route: 048
     Dates: start: 20020101
  4. CAPTOPRIL [Concomitant]
     Indication: HYPERTENSION
     Route: 048
     Dates: start: 20030101

REACTIONS (1)
  - HYPERTENSIVE CRISIS [None]
